FAERS Safety Report 9781465 (Version 2)
Quarter: 2014Q1

REPORT INFORMATION
  Report Type: Spontaneous
  Country: JP (occurrence: JP)
  Receive Date: 20131224
  Receipt Date: 20140123
  Transmission Date: 20141002
  Serious: Yes (Life-Threatening, Hospitalization, Other)
  Sender: FDA-Public Use
  Company Number: JP-BRISTOL-MYERS SQUIBB COMPANY-19939065

PATIENT
  Age: 76 Year
  Sex: Female
  Weight: 47 kg

DRUGS (13)
  1. ERBITUX SOLN FOR INF 5MG/ML [Suspect]
     Indication: NASOPHARYNGEAL CANCER
     Dosage: 580MG:24SEP13 TO 24SEP13?360MG:01OCT13 TO 01OCT13?350MG:4NOV13 TO 14NOV13?1 IN 1 D
     Route: 041
     Dates: start: 20130924, end: 20131114
  2. MINOMYCIN [Suspect]
     Dosage: 24SEP13:06OCT13:100 MG?21NOV13:04DEC13:100 MG :13D
     Route: 048
     Dates: start: 20130924, end: 20131204
  3. TAKEPRON [Suspect]
     Route: 048
     Dates: start: 20131115, end: 20131204
  4. POLARAMINE [Concomitant]
     Indication: PREMEDICATION
     Dosage: INFUSION.
     Route: 042
  5. DECADRON [Concomitant]
     Indication: PREMEDICATION
     Dosage: INFUSION.
     Route: 065
  6. ALLELOCK [Concomitant]
     Dosage: 20NOV13:20NOV13:5MG BID?21NOV13:04DEC13:10 MG BID :13D
     Route: 048
     Dates: start: 20131120, end: 20131204
  7. MAGMITT [Concomitant]
     Dosage: 1F:1OR 2 TAB
     Route: 048
     Dates: start: 20131118, end: 20131204
  8. CELECOXIB [Concomitant]
     Route: 048
     Dates: start: 20131115
  9. AMINO ACID+CARBOHYDRATE+ELECTR [Concomitant]
     Route: 041
  10. HEPARIN SODIUM [Concomitant]
     Route: 041
  11. VOLTAREN [Concomitant]
     Route: 054
  12. PURSENNID [Concomitant]
     Route: 048
  13. ALLOID [Concomitant]
     Route: 048
     Dates: start: 20131022, end: 20131104

REACTIONS (3)
  - Stevens-Johnson syndrome [Recovering/Resolving]
  - Sepsis [Unknown]
  - Radiation skin injury [Unknown]
